FAERS Safety Report 23993045 (Version 2)
Quarter: 2024Q3

REPORT INFORMATION
  Report Type: Report from Study
  Country: CO (occurrence: CO)
  Receive Date: 20240620
  Receipt Date: 20240704
  Transmission Date: 20241016
  Serious: Yes (Hospitalization, Disabling)
  Sender: NOVARTIS
  Company Number: CO-002147023-NVSC2023CO105339

PATIENT
  Sex: Female
  Weight: 48 kg

DRUGS (6)
  1. COSENTYX [Suspect]
     Active Substance: SECUKINUMAB
     Indication: Ankylosing spondylitis
     Dosage: 300 MG, QMO
     Route: 058
     Dates: start: 20230426
  2. COSENTYX [Suspect]
     Active Substance: SECUKINUMAB
     Dosage: 300 MG, QW
     Route: 058
  3. COSENTYX [Suspect]
     Active Substance: SECUKINUMAB
     Dosage: UNK (IMPREGNATION DOSE)
     Route: 065
  4. COSENTYX [Suspect]
     Active Substance: SECUKINUMAB
     Dosage: 150 MG, QMO
     Route: 065
     Dates: end: 202404
  5. COSENTYX [Suspect]
     Active Substance: SECUKINUMAB
     Dosage: 300 MG, QMO
     Route: 065
     Dates: start: 202404
  6. COSENTYX [Suspect]
     Active Substance: SECUKINUMAB
     Dosage: UNK
     Route: 065
     Dates: start: 20240617

REACTIONS (14)
  - Illness [Unknown]
  - Feeling abnormal [Unknown]
  - Urinary tract infection [Recovered/Resolved]
  - Arthralgia [Not Recovered/Not Resolved]
  - Condition aggravated [Unknown]
  - Oropharyngeal pain [Unknown]
  - Cough [Unknown]
  - Headache [Unknown]
  - Influenza [Unknown]
  - Decreased immune responsiveness [Unknown]
  - Fungal infection [Recovering/Resolving]
  - Rash macular [Not Recovered/Not Resolved]
  - Infection [Unknown]
  - Muscle rigidity [Recovering/Resolving]
